FAERS Safety Report 20636796 (Version 1)
Quarter: 2022Q1

REPORT INFORMATION
  Report Type: Spontaneous
  Country: US (occurrence: None)
  Receive Date: 20220324
  Receipt Date: 20220324
  Transmission Date: 20220423
  Serious: Yes (Disabling, Other)
  Sender: FDA-Public Use
  Company Number: None

PATIENT
  Age: 65 Year
  Sex: Female
  Weight: 76.5 kg

DRUGS (14)
  1. OZEMPIC [Suspect]
     Active Substance: SEMAGLUTIDE
     Indication: Insulin resistance
     Dates: start: 20200301, end: 20220211
  2. PANTOPRAZOLE [Concomitant]
     Active Substance: PANTOPRAZOLE
  3. TIMOPTIC [Concomitant]
     Active Substance: TIMOLOL MALEATE
  4. LOTEMAX [Concomitant]
     Active Substance: LOTEPREDNOL ETABONATE
  5. LACIDIPINE [Concomitant]
     Active Substance: LACIDIPINE
  6. XEOMIN [Concomitant]
     Active Substance: INCOBOTULINUMTOXINA
  7. MINERALS\VITAMINS [Concomitant]
     Active Substance: MINERALS\VITAMINS
  8. VITAMIN D3 [Concomitant]
     Active Substance: CHOLECALCIFEROL
  9. VITAMIN B12 [Concomitant]
     Active Substance: CYANOCOBALAMIN
  10. VITAMIN C [Concomitant]
     Active Substance: ASCORBIC ACID
  11. ZINC [Concomitant]
     Active Substance: ZINC
  12. BIOTIN [Concomitant]
     Active Substance: BIOTIN
  13. FISH OIL [Concomitant]
     Active Substance: FISH OIL
  14. CLARITIN [Concomitant]
     Active Substance: LORATADINE

REACTIONS (3)
  - Macular hole [None]
  - Central vision loss [None]
  - Intraocular pressure increased [None]

NARRATIVE: CASE EVENT DATE: 20220105
